FAERS Safety Report 14899231 (Version 1)
Quarter: 2018Q2

REPORT INFORMATION
  Report Type: Report from Study
  Country: CA (occurrence: CA)
  Receive Date: 20180516
  Receipt Date: 20180516
  Transmission Date: 20180711
  Serious: Yes (Other)
  Sender: FDA-Public Use
  Company Number: CA-BRISTOL-MYERS SQUIBB COMPANY-BMS-2017-068982

PATIENT
  Age: 74 Year
  Sex: Female

DRUGS (1)
  1. ABATACEPT [Suspect]
     Active Substance: ABATACEPT
     Indication: RHEUMATOID ARTHRITIS
     Dosage: 500 MG, Q4WK
     Route: 042
     Dates: start: 20130610

REACTIONS (28)
  - Cough [Recovering/Resolving]
  - Throat irritation [Unknown]
  - Oropharyngeal pain [Recovered/Resolved]
  - Pain in extremity [Unknown]
  - Nausea [Unknown]
  - Headache [Recovering/Resolving]
  - Pyrexia [Recovered/Resolved]
  - Aphonia [Unknown]
  - Mucosal discolouration [Unknown]
  - Bronchitis [Recovering/Resolving]
  - Rheumatoid arthritis [Recovering/Resolving]
  - Fatigue [Recovering/Resolving]
  - Rhinorrhoea [Recovered/Resolved]
  - Asthenia [Unknown]
  - Nasopharyngitis [Not Recovered/Not Resolved]
  - Chills [Recovered/Resolved]
  - Infection [Unknown]
  - Lacrimation increased [Unknown]
  - Productive cough [Recovering/Resolving]
  - Oropharyngeal pain [Unknown]
  - Arthropathy [Unknown]
  - Sinusitis [Recovered/Resolved]
  - Finger deformity [Unknown]
  - Dysphonia [Unknown]
  - Influenza [Unknown]
  - Diarrhoea [Unknown]
  - Wheezing [Unknown]
  - Inflammation [Unknown]

NARRATIVE: CASE EVENT DATE: 20170809
